FAERS Safety Report 7226587-1 (Version None)
Quarter: 2011Q1

REPORT INFORMATION
  Report Type: 
  Country: None (occurrence: None)
  Receive Date: 20110105
  Receipt Date: 20101220
  Transmission Date: 20110831
  Serious: Yes (Hospitalization)
  Sender: FDA-Public Use
  Company Number: 2007000630

PATIENT
  Age: 70 Year
  Sex: Female
  Weight: 46.7205 kg

DRUGS (2)
  1. BEVACIZUMAB (INJECTION FOR INFUSION) [Suspect]
     Indication: NON-SMALL CELL LUNG CANCER
     Dosage: 15 MG/KG (15 MG. Q3W), INTRAVENOUS
     Route: 042
     Dates: start: 20061114
  2. ERLOTINIB (ERLOTINIB) (TABLET) (ERLOTINIB) [Suspect]
     Indication: NON-SMALL CELL LUNG CANCER
     Dosage: 150 MG (150 MG, QD), ORAL
     Route: 048
     Dates: start: 20070307

REACTIONS (11)
  - METASTASES TO SPINE [None]
  - SPINAL DISORDER [None]
  - CHOLELITHIASIS [None]
  - BLOOD SODIUM DECREASED [None]
  - DILATATION INTRAHEPATIC DUCT ACQUIRED [None]
  - DEHYDRATION [None]
  - ULTRASOUND LIVER ABNORMAL [None]
  - HYPONATRAEMIA [None]
  - HYPOVOLAEMIA [None]
  - OEDEMA [None]
  - CARBON DIOXIDE DECREASED [None]
